FAERS Safety Report 25321729 (Version 1)
Quarter: 2025Q2

REPORT INFORMATION
  Report Type: Spontaneous
  Country: US (occurrence: US)
  Receive Date: 20250516
  Receipt Date: 20250516
  Transmission Date: 20250716
  Serious: Yes (Hospitalization)
  Sender: UNITED THERAPEUTICS
  Company Number: US-UNITED THERAPEUTICS-UNT-2024-032601

PATIENT
  Sex: Female

DRUGS (5)
  1. TYVASO [Suspect]
     Active Substance: TREPROSTINIL
     Indication: Pulmonary arterial hypertension
     Dosage: 18 ?G, QID
     Dates: start: 20241014, end: 20241015
  2. TYVASO [Suspect]
     Active Substance: TREPROSTINIL
     Dosage: 6 ?G, QID
     Dates: start: 20241015, end: 20241023
  3. TYVASO [Suspect]
     Active Substance: TREPROSTINIL
     Dosage: 12 ?G, QID
     Dates: start: 20241023, end: 202411
  4. TYVASO [Suspect]
     Active Substance: TREPROSTINIL
     Dosage: 24 ?G, QID
     Dates: start: 202411, end: 202411
  5. TYVASO [Suspect]
     Active Substance: TREPROSTINIL

REACTIONS (9)
  - Neck pain [Unknown]
  - Infection [Unknown]
  - Haemorrhage [Unknown]
  - Nausea [Not Recovered/Not Resolved]
  - Headache [Unknown]
  - Productive cough [Not Recovered/Not Resolved]
  - Oedema peripheral [Unknown]
  - Pollakiuria [Unknown]
  - Therapy interrupted [Unknown]

NARRATIVE: CASE EVENT DATE: 20240101
